FAERS Safety Report 17643369 (Version 1)
Quarter: 2020Q2

REPORT INFORMATION
  Report Type: Spontaneous
  Country: US (occurrence: US)
  Receive Date: 20200408
  Receipt Date: 20200408
  Transmission Date: 20200713
  Serious: No
  Sender: FDA-Public Use
  Company Number: None

PATIENT
  Age: 36 Year
  Sex: Female
  Weight: 166.5 kg

DRUGS (3)
  1. SINUS CONGESTION AND PAIN SEVERE [Suspect]
     Active Substance: ACETAMINOPHEN\GUAIFENESIN\PHENYLEPHRINE HYDROCHLORIDE
     Indication: COUGH
     Dosage: ?          QUANTITY:24 TABLET(S);?
     Route: 048
     Dates: start: 20200407, end: 20200407
  2. SINUS CONGESTION AND PAIN SEVERE [Suspect]
     Active Substance: ACETAMINOPHEN\GUAIFENESIN\PHENYLEPHRINE HYDROCHLORIDE
     Indication: SINUS PAIN
     Dosage: ?          QUANTITY:24 TABLET(S);?
     Route: 048
     Dates: start: 20200407, end: 20200407
  3. SINUS CONGESTION AND PAIN SEVERE [Suspect]
     Active Substance: ACETAMINOPHEN\GUAIFENESIN\PHENYLEPHRINE HYDROCHLORIDE
     Indication: PYREXIA
     Dosage: ?          QUANTITY:24 TABLET(S);?
     Route: 048
     Dates: start: 20200407, end: 20200407

REACTIONS (6)
  - Back pain [None]
  - Abdominal pain upper [None]
  - Dyspnoea [None]
  - Diarrhoea [None]
  - Palpitations [None]
  - Hot flush [None]

NARRATIVE: CASE EVENT DATE: 20200407
